FAERS Safety Report 22133150 (Version 1)
Quarter: 2023Q1

REPORT INFORMATION
  Report Type: Spontaneous
  Country: BE (occurrence: BE)
  Receive Date: 20230324
  Receipt Date: 20230324
  Transmission Date: 20230418
  Serious: Yes (Other)
  Sender: FDA-Public Use
  Company Number: BE-009507513-2303BEL006974

PATIENT
  Age: 68 Year
  Sex: Female

DRUGS (3)
  1. TEMOZOLOMIDE [Suspect]
     Active Substance: TEMOZOLOMIDE
     Indication: Glioblastoma
     Dosage: CONCOMITANTLY WITH RADIOTHERAPY
     Route: 048
     Dates: end: 202010
  2. TEMOZOLOMIDE [Suspect]
     Active Substance: TEMOZOLOMIDE
     Dosage: 8 COURSES
     Route: 048
     Dates: end: 202108
  3. TEMOZOLOMIDE [Suspect]
     Active Substance: TEMOZOLOMIDE
     Dosage: 6 COURSES
     Route: 048
     Dates: start: 202207, end: 202301

REACTIONS (3)
  - Malignant neoplasm progression [Unknown]
  - Glioblastoma [Unknown]
  - Recurrent cancer [Unknown]

NARRATIVE: CASE EVENT DATE: 20220701
